FAERS Safety Report 18293319 (Version 1)
Quarter: 2020Q3

REPORT INFORMATION
  Report Type: Spontaneous
  Country: AF (occurrence: AF)
  Receive Date: 20200921
  Receipt Date: 20200921
  Transmission Date: 20201103
  Serious: No
  Sender: FDA-Public Use
  Company Number: None

PATIENT
  Age: 58 Year
  Sex: Male
  Weight: 76.5 kg

DRUGS (9)
  1. PREDNISONE 5MG [Concomitant]
     Active Substance: PREDNISONE
  2. ALPRAZOLAM 1MG [Concomitant]
     Active Substance: ALPRAZOLAM
  3. TRELSTAR 22.5MG [Concomitant]
  4. POTASSIUM CHLORIDE CRYS ER 20MEQ [Concomitant]
  5. XGEVA [Suspect]
     Active Substance: DENOSUMAB
     Indication: PROSTATE CANCER
     Dosage: ?          OTHER FREQUENCY:EVERY 60 DAYS;?
     Route: 058
     Dates: start: 20200511
  6. TAMSULOSIN 0.4MG [Concomitant]
     Active Substance: TAMSULOSIN
  7. ABIRATERONE. [Suspect]
     Active Substance: ABIRATERONE ACETATE
     Indication: PROSTATE CANCER
     Route: 048
     Dates: start: 20200331
  8. CYCLOBENZAPRINE 10MG [Concomitant]
     Active Substance: CYCLOBENZAPRINE
  9. IBUPROFEN 800MG [Concomitant]
     Active Substance: IBUPROFEN

REACTIONS (5)
  - Balance disorder [None]
  - Discomfort [None]
  - Arthralgia [None]
  - Impaired driving ability [None]
  - Abdominal pain [None]

NARRATIVE: CASE EVENT DATE: 20200921
